FAERS Safety Report 12945230 (Version 1)
Quarter: 2016Q4

REPORT INFORMATION
  Report Type: Spontaneous
  Country: DE (occurrence: DE)
  Receive Date: 20161115
  Receipt Date: 20161115
  Transmission Date: 20170207
  Serious: Yes (Other)
  Sender: FDA-Public Use
  Company Number: DE-BAUSCH-BL-2016-027336

PATIENT
  Sex: Female

DRUGS (1)
  1. ZYKLOLAT EDO [Suspect]
     Active Substance: CYCLOPENTOLATE
     Indication: DIAGNOSTIC PROCEDURE
     Dosage: 3 DROPS AT 5-10 MINUTE INTERVALS APPROXIMATELY 1 HOUR BEFORE THE EXAMINATION.
     Route: 065
     Dates: start: 20161101, end: 20161101

REACTIONS (6)
  - Visual field defect [Recovered/Resolved]
  - Confusional state [Recovered/Resolved]
  - Disorientation [Recovered/Resolved]
  - Nasopharyngitis [Recovered/Resolved]
  - Dry mouth [Recovered/Resolved]
  - Hallucination [Recovered/Resolved]

NARRATIVE: CASE EVENT DATE: 201611
